FAERS Safety Report 16644631 (Version 1)
Quarter: 2019Q3

REPORT INFORMATION
  Report Type: Report from Study
  Country: DE (occurrence: DE)
  Receive Date: 20190729
  Receipt Date: 20190729
  Transmission Date: 20191004
  Serious: Yes (Hospitalization)
  Sender: FDA-Public Use
  Company Number: DE-MYLANLABS-2019M1070455

PATIENT
  Age: 67 Year
  Sex: Female
  Weight: 71 kg

DRUGS (40)
  1. TRASTUZUMAB. [Suspect]
     Active Substance: TRASTUZUMAB
     Dosage: 264 MILLIGRAM, QW
     Route: 042
     Dates: start: 20131227, end: 20131227
  2. TRASTUZUMAB. [Suspect]
     Active Substance: TRASTUZUMAB
     Dosage: 132 MILLIGRAM, QW
     Route: 042
     Dates: start: 20140131
  3. DOCETAXEL. [Suspect]
     Active Substance: DOCETAXEL
     Dosage: 43 MILLIGRAM/SQ. METER
     Route: 042
     Dates: start: 20140214
  4. DOCETAXEL. [Suspect]
     Active Substance: DOCETAXEL
     Dosage: 43 MILLIGRAM, QW
     Route: 042
     Dates: start: 20140310, end: 20140310
  5. DOCETAXEL. [Suspect]
     Active Substance: DOCETAXEL
     Dosage: 43 MILLIGRAM/SQ. METER
     Route: 042
     Dates: start: 20140207
  6. PERTUZUMAB. [Suspect]
     Active Substance: PERTUZUMAB
     Dosage: 420 MILLIGRAM, Q3W
     Route: 042
     Dates: start: 20140613, end: 20141107
  7. PERTUZUMAB. [Suspect]
     Active Substance: PERTUZUMAB
     Dosage: 420 MILLIGRAM, QW
     Route: 042
     Dates: start: 20140110, end: 20140110
  8. FORTECORTIN                        /00016001/ [Concomitant]
     Active Substance: DEXAMETHASONE
     Indication: PROPHYLAXIS OF NAUSEA AND VOMITING
     Dosage: 8 MILLIGRAM, QW
     Route: 042
     Dates: start: 20131027, end: 20140404
  9. TRASTUZUMAB. [Suspect]
     Active Substance: TRASTUZUMAB
     Dosage: 132 MILLIGRAM, QW
     Route: 042
     Dates: start: 20140331
  10. TRASTUZUMAB. [Suspect]
     Active Substance: TRASTUZUMAB
     Dosage: 132 MILLIGRAM, QW
     Route: 042
     Dates: start: 20140110
  11. DOCETAXEL. [Suspect]
     Active Substance: DOCETAXEL
     Dosage: 43 MILLIGRAM/SQ. METER
     Route: 042
     Dates: start: 20130303, end: 20140303
  12. FENISTIL [Concomitant]
     Active Substance: DIMETHINDENE
     Indication: ANAPHYLAXIS PROPHYLAXIS
     Dosage: 1 DOSAGE FORM, QW
     Route: 042
     Dates: start: 20131227, end: 20140404
  13. TRASTUZUMAB. [Suspect]
     Active Substance: TRASTUZUMAB
     Dosage: 396 MILLIGRAM UNK
     Route: 042
     Dates: start: 20140613
  14. PANTOPRAZOL                        /01263201/ [Concomitant]
     Active Substance: PANTOPRAZOLE
     Indication: PROPHYLAXIS AGAINST GASTROINTESTINAL ULCER
     Dosage: 1 UNK, QD
     Route: 048
     Dates: start: 20131220
  15. MONO-EMBOLEX [Concomitant]
     Active Substance: CERTOPARIN SODIUM
     Indication: FACTOR V LEIDEN MUTATION
     Dosage: 1 UNK, QD
     Route: 058
     Dates: start: 20131220, end: 20140417
  16. TRASTUZUMAB. [Suspect]
     Active Substance: TRASTUZUMAB
     Dosage: 396 MILLIGRAM UNK
     Route: 042
     Dates: start: 20140411
  17. KEVATRIL [Concomitant]
     Active Substance: GRANISETRON HYDROCHLORIDE
     Indication: PROPHYLAXIS OF NAUSEA AND VOMITING
     Dosage: 1.5 MILLIGRAM, QW
     Route: 042
     Dates: start: 20131027, end: 20140404
  18. RANITIC [Concomitant]
     Active Substance: RANITIDINE HYDROCHLORIDE
     Indication: ANAPHYLAXIS PROPHYLAXIS
     Dosage: 1 DOSAGE FORM, QW
     Route: 042
     Dates: start: 20131227, end: 20140404
  19. TRASTUZUMAB. [Suspect]
     Active Substance: TRASTUZUMAB
     Dosage: 132 MILLIGRAM, QW
     Route: 042
     Dates: start: 20140102, end: 20140404
  20. TRASTUZUMAB. [Suspect]
     Active Substance: TRASTUZUMAB
     Dosage: 132 MILLIGRAM, QW
     Route: 042
     Dates: start: 20140124
  21. TRASTUZUMAB. [Suspect]
     Active Substance: TRASTUZUMAB
     Dosage: 132 MILLIGRAM, QW
     Route: 042
     Dates: start: 20140224
  22. DOCETAXEL. [Suspect]
     Active Substance: DOCETAXEL
     Dosage: 43 MILLIGRAM/SQ. METER
     Route: 042
     Dates: start: 20140110
  23. DOCETAXEL. [Suspect]
     Active Substance: DOCETAXEL
     Dosage: 43 MILLIGRAM, QW
     Route: 042
     Dates: start: 20140117, end: 20141107
  24. DOCETAXEL. [Suspect]
     Active Substance: DOCETAXEL
     Dosage: 43 MILLIGRAM, QW
     Route: 042
     Dates: start: 20140224
  25. BONDRONAT                          /01304701/ [Concomitant]
     Active Substance: IBANDRONATE SODIUM
     Indication: CANCER PAIN
     Dosage: 6 MILLIGRAM
     Route: 042
     Dates: start: 20140303
  26. DOCETAXEL. [Suspect]
     Active Substance: DOCETAXEL
     Indication: HER-2 POSITIVE BREAST CANCER
     Dosage: 43 MILLIGRAM, QW
     Route: 042
     Dates: start: 20131227, end: 20131227
  27. DOCETAXEL. [Suspect]
     Active Substance: DOCETAXEL
     Dosage: 43 MILLIGRAM, QW
     Route: 042
     Dates: start: 20140124, end: 20140124
  28. DOCETAXEL. [Suspect]
     Active Substance: DOCETAXEL
     Dosage: 43 MILLIGRAM/SQ. METER
     Route: 042
     Dates: start: 20140224
  29. PERTUZUMAB. [Suspect]
     Active Substance: PERTUZUMAB
     Indication: HER-2 POSITIVE BREAST CANCER
     Dosage: 420 MILLIGRAM, BIWEEKLY
     Route: 042
     Dates: start: 20140117
  30. TRASTUZUMAB. [Suspect]
     Active Substance: TRASTUZUMAB
     Dosage: 132 MILLIGRAM, QW
     Route: 042
     Dates: start: 20140207
  31. TRASTUZUMAB. [Suspect]
     Active Substance: TRASTUZUMAB
     Dosage: 132 MILLIGRAM, QW
     Route: 042
     Dates: start: 20140214
  32. TRASTUZUMAB. [Suspect]
     Active Substance: TRASTUZUMAB
     Dosage: 132 MILLIGRAM, QW
     Route: 042
     Dates: start: 20140310, end: 20140310
  33. PERTUZUMAB. [Suspect]
     Active Substance: PERTUZUMAB
     Dosage: 420 MILLIGRAM, Q3W
     Route: 042
     Dates: start: 20140224
  34. TILIDIN [Concomitant]
     Active Substance: NALOXONE HYDROCHLORIDE\TILIDINE HYDROCHLORIDE
     Indication: CANCER PAIN
     Dosage: 50/4 MG
     Route: 048
     Dates: start: 20131220
  35. TRASTUZUMAB. [Suspect]
     Active Substance: TRASTUZUMAB
     Indication: PRODUCT USED FOR UNKNOWN INDICATION
     Dosage: 132 MILLIGRAM, QW
     Route: 042
     Dates: start: 20140117, end: 20141107
  36. TRASTUZUMAB. [Suspect]
     Active Substance: TRASTUZUMAB
     Dosage: 132 MILLIGRAM, QW
     Route: 042
     Dates: start: 20140303, end: 20140303
  37. LETROZOLE. [Suspect]
     Active Substance: LETROZOLE
     Indication: HER-2 POSITIVE BREAST CANCER
     Dosage: 2.5 MILLIGRAM
     Route: 065
     Dates: start: 20140407, end: 20141107
  38. DOCETAXEL. [Suspect]
     Active Substance: DOCETAXEL
     Dosage: 43 MILLIGRAM/SQ. METER
     Route: 042
     Dates: start: 20140131
  39. MONO-EMBOLEX [Concomitant]
     Active Substance: CERTOPARIN SODIUM
     Indication: PROPHYLAXIS
     Dosage: UNK
  40. IBUPROFEN. [Concomitant]
     Active Substance: IBUPROFEN
     Indication: CANCER PAIN
     Dosage: 600 MILLIGRAM
     Route: 048
     Dates: start: 20131220

REACTIONS (15)
  - Oral herpes [Recovered/Resolved]
  - Arthralgia [Recovered/Resolved]
  - Macular hole [Unknown]
  - Epistaxis [Recovered/Resolved]
  - Pruritus [Recovered/Resolved]
  - Macular scar [Recovered/Resolved]
  - Diarrhoea [Recovered/Resolved]
  - Fatigue [Recovered/Resolved]
  - Lymphoedema [Recovered/Resolved]
  - Balance disorder [Recovered/Resolved]
  - Back pain [Recovered/Resolved]
  - Tachycardia [Recovered/Resolved]
  - Abdominal pain upper [Recovered/Resolved]
  - Visual impairment [Recovered/Resolved]
  - Muscle spasms [Recovered/Resolved]

NARRATIVE: CASE EVENT DATE: 20140113
